FAERS Safety Report 16120160 (Version 1)
Quarter: 2019Q1

REPORT INFORMATION
  Report Type: Spontaneous
  Country: US (occurrence: US)
  Receive Date: 20190326
  Receipt Date: 20190326
  Transmission Date: 20190418
  Serious: No
  Sender: FDA-Public Use
  Company Number: US-MAYNE PHARMA-2018MYN000392

PATIENT

DRUGS (1)
  1. TAMOXIFEN CITRATE. [Suspect]
     Active Substance: TAMOXIFEN CITRATE
     Dosage: 20 MG, QD
     Route: 048
     Dates: start: 20180101, end: 201802

REACTIONS (8)
  - Chills [Recovered/Resolved]
  - Mood swings [Recovered/Resolved]
  - Influenza like illness [Recovered/Resolved]
  - Depression [Recovered/Resolved]
  - Night sweats [Recovered/Resolved]
  - Insomnia [Recovered/Resolved]
  - Arthralgia [Recovered/Resolved]
  - Crying [Recovered/Resolved]

NARRATIVE: CASE EVENT DATE: 201801
